FAERS Safety Report 13778419 (Version 2)
Quarter: 2017Q3

REPORT INFORMATION
  Report Type: Spontaneous
  Country: US (occurrence: US)
  Receive Date: 20170721
  Receipt Date: 20170727
  Transmission Date: 20171127
  Serious: Yes (Hospitalization)
  Sender: FDA-Public Use
  Company Number: US-ASTRAZENECA-2017SE73411

PATIENT
  Age: 20532 Day
  Sex: Female
  Weight: 103.4 kg

DRUGS (7)
  1. GABAPENTIN. [Concomitant]
     Active Substance: GABAPENTIN
     Indication: NEUROPATHY PERIPHERAL
     Dosage: DAILY
     Route: 048
  2. INSULIN [Concomitant]
     Active Substance: INSULIN NOS
  3. SYMBICORT [Suspect]
     Active Substance: BUDESONIDE\FORMOTEROL FUMARATE DIHYDRATE
     Indication: ASTHMA
     Route: 055
     Dates: start: 2016
  4. CELEXA [Concomitant]
     Active Substance: CITALOPRAM HYDROBROMIDE
     Indication: DEPRESSION
     Route: 048
  5. FARXIGA [Suspect]
     Active Substance: DAPAGLIFLOZIN PROPANEDIOL
     Indication: TYPE 2 DIABETES MELLITUS
     Route: 048
     Dates: start: 2015
  6. BREO ELLIPTA [Concomitant]
     Active Substance: FLUTICASONE FUROATE\VILANTEROL TRIFENATATE
     Dosage: ONE PUFF PER DAY, SINCE APRIL OR MAY 2017
  7. LISINOPRIL. [Suspect]
     Active Substance: LISINOPRIL
     Indication: HYPERTENSION
     Dosage: DAILY
     Route: 048

REACTIONS (15)
  - Fear [Unknown]
  - Tremor [Unknown]
  - Blood pressure decreased [Unknown]
  - Vomiting [Unknown]
  - Malaise [Unknown]
  - Hypertension [Unknown]
  - Headache [Unknown]
  - Anxiety [Unknown]
  - Therapy cessation [Unknown]
  - Impaired gastric emptying [Unknown]
  - Depression [Unknown]
  - Stress [Unknown]
  - Amnesia [Unknown]
  - Neuropathy peripheral [Unknown]
  - Nausea [Unknown]

NARRATIVE: CASE EVENT DATE: 20170714
